FAERS Safety Report 6924929-5 (Version None)
Quarter: 2010Q3

REPORT INFORMATION
  Report Type: 
  Country: None (occurrence: None)
  Receive Date: 20100816
  Receipt Date: 20100802
  Transmission Date: 20110219
  Serious: Yes (Other)
  Sender: FDA-Public Use
  Company Number: TN-SANOFI-AVENTIS-2010SA045280

PATIENT
  Age: 30 Year
  Sex: Female

DRUGS (3)
  1. CEFOTAXIME SODIUM [Suspect]
     Indication: SINUSITIS
     Route: 042
  2. FOSFOMYCIN [Concomitant]
     Route: 042
  3. CIPROFLOXACIN [Concomitant]
     Route: 048

REACTIONS (4)
  - ACUTE GENERALISED EXANTHEMATOUS PUSTULOSIS [None]
  - ORAL MUCOSA EROSION [None]
  - PYREXIA [None]
  - RASH PRURITIC [None]
